FAERS Safety Report 4822325-8 (Version None)
Quarter: 2005Q4

REPORT INFORMATION
  Report Type: 
  Country: None (occurrence: None)
  Receive Date: 20051103
  Receipt Date: 20051025
  Transmission Date: 20060501
  Serious: Yes (Life-Threatening)
  Sender: FDA-Public Use
  Company Number: MK200510-0237-1

PATIENT
  Age: 59 Year
  Sex: Female

DRUGS (1)
  1. OPTIRAY 320 [Suspect]
     Indication: COMPUTERISED TOMOGRAM ABDOMEN
     Dosage: 90 ML, ONE TIME, IV
     Route: 042
     Dates: start: 20051025, end: 20051025

REACTIONS (3)
  - RESPIRATORY DISTRESS [None]
  - SNEEZING [None]
  - THROAT TIGHTNESS [None]
